FAERS Safety Report 8353279-8 (Version None)
Quarter: 2012Q2

REPORT INFORMATION
  Report Type: 
  Country: None (occurrence: None)
  Receive Date: 20120511
  Receipt Date: 20120503
  Transmission Date: 20120825
  Serious: Yes (Other)
  Sender: FDA-Public Use
  Company Number: FR-ASTRAZENECA-2012SE18093

PATIENT
  Age: 11012 Day
  Sex: Female
  Weight: 57 kg

DRUGS (5)
  1. QUETIAPINE FUMARATE [Suspect]
     Indication: BIPOLAR DISORDER
     Route: 048
     Dates: start: 20111121, end: 20111122
  2. QUETIAPINE FUMARATE [Suspect]
     Route: 048
     Dates: start: 20111123, end: 20111124
  3. QUETIAPINE FUMARATE [Suspect]
     Dosage: DOSE REDUCED
     Route: 048
  4. GESTODENE AND ETHINYL ESTRADIOL [Concomitant]
     Indication: CONTRACEPTION
     Route: 048
  5. QUETIAPINE FUMARATE [Suspect]
     Route: 048
     Dates: start: 20111125

REACTIONS (2)
  - HYPERPROLACTINAEMIA [None]
  - DYSMENORRHOEA [None]
